FAERS Safety Report 20839136 (Version 2)
Quarter: 2022Q2

REPORT INFORMATION
  Report Type: Report from Study
  Country: US (occurrence: US)
  Receive Date: 20220517
  Receipt Date: 20220518
  Transmission Date: 20220721
  Serious: Yes (Other)
  Sender: FDA-Public Use
  Company Number: US-ABBVIE-22K-163-4394352-00

PATIENT
  Age: 59 Year
  Sex: Female

DRUGS (2)
  1. RINVOQ [Suspect]
     Active Substance: UPADACITINIB
     Indication: Rheumatoid arthritis
     Route: 048
  2. PFIZER-BIONTECH COVID-19 VACCINE [Concomitant]
     Active Substance: TOZINAMERAN
     Indication: COVID-19 immunisation
     Route: 030
     Dates: start: 20220504, end: 20220504

REACTIONS (7)
  - Intervertebral disc degeneration [Unknown]
  - Hip arthroplasty [Unknown]
  - Knee arthroplasty [Unknown]
  - Non-alcoholic steatohepatitis [Unknown]
  - Liver disorder [Unknown]
  - Osteoarthritis [Unknown]
  - COVID-19 [Unknown]

NARRATIVE: CASE EVENT DATE: 20220101
